FAERS Safety Report 17163989 (Version 1)
Quarter: 2019Q4

REPORT INFORMATION
  Report Type: Spontaneous
  Country: US (occurrence: US)
  Receive Date: 20191217
  Receipt Date: 20191217
  Transmission Date: 20200122
  Serious: Yes (Hospitalization)
  Sender: FDA-Public Use
  Company Number: US-IPSEN BIOPHARMACEUTICALS, INC.-2019-25179

PATIENT
  Age: 63 Year
  Sex: Female

DRUGS (6)
  1. SOMATULINE DEPOT [Suspect]
     Active Substance: LANREOTIDE ACETATE
     Indication: NEUROENDOCRINE TUMOUR
     Route: 058
     Dates: start: 20190627
  2. LEVOTHYROXIN [Concomitant]
     Active Substance: LEVOTHYROXINE
  3. METAXALONE. [Concomitant]
     Active Substance: METAXALONE
     Dates: start: 20190920
  4. TRAMADOL. [Concomitant]
     Active Substance: TRAMADOL
     Dates: start: 20191206
  5. LACTULOSE. [Concomitant]
     Active Substance: LACTULOSE
     Dosage: 10 GM/15
     Dates: start: 20190927
  6. OCTREOTIDE. [Suspect]
     Active Substance: OCTREOTIDE
     Indication: NEUROENDOCRINE TUMOUR
     Dosage: 150 MCG (.15 ML)
     Route: 058
     Dates: start: 20191113

REACTIONS (1)
  - Carcinoid crisis [Unknown]

NARRATIVE: CASE EVENT DATE: 20191211
